FAERS Safety Report 5556874-4 (Version None)
Quarter: 2007Q4

REPORT INFORMATION
  Report Type: 
  Country: None (occurrence: None)
  Receive Date: 20071211
  Receipt Date: 20071211
  Transmission Date: 20080405
  Serious: Yes (Life-Threatening)
  Sender: FDA-Public Use
  Company Number: None

PATIENT
  Age: 44 Year
  Sex: Female
  Weight: 63.5036 kg

DRUGS (2)
  1. CHANTIX [Suspect]
     Dosage: WEEK ONE STARTING PO
  2. CHANTIX [Suspect]
     Dosage: PORTION OF WEEK 2 ONLY TAKEN

REACTIONS (5)
  - AGGRESSION [None]
  - ANGER [None]
  - ANXIETY [None]
  - DEPRESSION [None]
  - NEGATIVE THOUGHTS [None]
